FAERS Safety Report 8589725-4 (Version None)
Quarter: 2012Q3

REPORT INFORMATION
  Report Type: 
  Country: None (occurrence: None)
  Receive Date: 20120813
  Receipt Date: 20120730
  Transmission Date: 20120928
  Serious: Yes (Hospitalization)
  Sender: FDA-Public Use
  Company Number: US-MYLANLABS-2012S1015836

PATIENT
  Age: 40 Year
  Sex: Female

DRUGS (8)
  1. RALTEGRAVIR [Suspect]
     Indication: HIV INFECTION
     Route: 065
  2. PIOGLITAZONE [Concomitant]
     Route: 065
  3. ZIDOVUDINE [Suspect]
     Indication: HIV INFECTION
     Route: 065
  4. HYDROCHLOROTHIAZIDE [Concomitant]
     Route: 065
  5. OMEPRAZOLE [Concomitant]
     Route: 065
  6. INSULIN DETEMIR [Concomitant]
     Route: 065
  7. LAMIVUDINE [Suspect]
     Indication: HIV INFECTION
     Route: 065
  8. METOPROLOL [Concomitant]
     Route: 065

REACTIONS (2)
  - RENAL FAILURE ACUTE [None]
  - LACTIC ACIDOSIS [None]
